FAERS Safety Report 24680773 (Version 2)
Quarter: 2024Q4

REPORT INFORMATION
  Report Type: Spontaneous
  Country: PT (occurrence: PT)
  Receive Date: 20241129
  Receipt Date: 20241230
  Transmission Date: 20250115
  Serious: Yes (Other)
  Sender: ALEXION PHARMACEUTICALS
  Company Number: PT-AstraZeneca-CH-00736690AP

PATIENT
  Age: 62 Year

DRUGS (4)
  1. BYDUREON [Suspect]
     Active Substance: EXENATIDE
     Indication: Product used for unknown indication
     Dosage: 2 MILLIGRAM, QW
  2. BYDUREON [Suspect]
     Active Substance: EXENATIDE
     Dosage: 2 MILLIGRAM, QW
     Route: 058
  3. BYDUREON [Suspect]
     Active Substance: EXENATIDE
     Dosage: 2 MILLIGRAM, QW
  4. BYDUREON [Suspect]
     Active Substance: EXENATIDE
     Dosage: 2 MILLIGRAM, QW
     Route: 058

REACTIONS (5)
  - Haemorrhage [Unknown]
  - Device defective [Unknown]
  - Drug dose omission by device [Unknown]
  - Device leakage [Unknown]
  - Product use issue [Unknown]
